FAERS Safety Report 7791736-3 (Version None)
Quarter: 2011Q3

REPORT INFORMATION
  Report Type: 
  Country: None (occurrence: None)
  Receive Date: 20110929
  Receipt Date: 20110913
  Transmission Date: 20111222
  Serious: Yes (Other)
  Sender: FDA-Public Use
  Company Number: 1000023855

PATIENT
  Age: 43 Year
  Sex: Male

DRUGS (5)
  1. MVI (MVI) (MVI) [Concomitant]
  2. VIIBRYD [Suspect]
     Indication: DEPRESSION
     Dosage: 40 MG (40 MG, 1 IN 1 D),ORAL
     Route: 048
     Dates: start: 20110905, end: 20110908
  3. VITAMIN D (VITAMIN D)(VITAMIN D) [Concomitant]
  4. VIIBRYD [Suspect]
     Indication: DEPRESSION
     Dosage: 10 MG (10 MG, 1 IN 1 D),ORAL; 20 MG (20 MG, 1 IN 1 D),ORAL
     Route: 048
     Dates: start: 20110822, end: 20110828
  5. VIIBRYD [Suspect]
     Indication: DEPRESSION
     Dosage: 10 MG (10 MG, 1 IN 1 D),ORAL; 20 MG (20 MG, 1 IN 1 D),ORAL
     Route: 048
     Dates: start: 20110829, end: 20110904

REACTIONS (10)
  - THIRST [None]
  - VISION BLURRED [None]
  - HYPERHIDROSIS [None]
  - HYPERSENSITIVITY [None]
  - ANXIETY [None]
  - HEART RATE INCREASED [None]
  - SUICIDAL IDEATION [None]
  - DIARRHOEA [None]
  - MEMORY IMPAIRMENT [None]
  - HALLUCINATION [None]
